FAERS Safety Report 8048598-9 (Version None)
Quarter: 2011Q4

REPORT INFORMATION
  Report Type: 
  Country: None (occurrence: None)
  Receive Date: 20111230
  Receipt Date: 20111219
  Transmission Date: 20120403
  Serious: No
  Sender: FDA-Public Use
  Company Number: 2011PROUSA00767

PATIENT
  Age: 63 Year
  Sex: Male
  Weight: 125.6 kg

DRUGS (13)
  1. FISH OIL (FISH OIL) [Concomitant]
  2. CHOLECALCIFEROL (CHOLECALCIFEROL) [Concomitant]
  3. AMLODIPINE BESYLATE [Concomitant]
  4. PROVENGE [Suspect]
     Dosage: 250 ML, SINGLE, INTRAVENOUS
     Route: 042
     Dates: start: 20111216, end: 20111216
  5. VITAMIN TAB [Concomitant]
  6. FLUTAMIDE [Concomitant]
  7. NIACIN [Concomitant]
  8. ASCORBIC ACID [Concomitant]
  9. LISINOPRIL [Concomitant]
  10. ABILIFY [Concomitant]
  11. PROVENGE [Suspect]
     Indication: PROSTATE CANCER METASTATIC
     Dosage: 250 ML, SINGLE, INTRAVENOUS
     Route: 042
     Dates: start: 20111028, end: 20111028
  12. CRESTOR [Concomitant]
  13. ATENOLOL [Concomitant]

REACTIONS (4)
  - DYSARTHRIA [None]
  - MUSCULAR WEAKNESS [None]
  - CONFUSIONAL STATE [None]
  - DYSPNOEA [None]
